FAERS Safety Report 16451756 (Version 1)
Quarter: 2019Q2

REPORT INFORMATION
  Report Type: Spontaneous
  Country: US (occurrence: US)
  Receive Date: 20190619
  Receipt Date: 20190619
  Transmission Date: 20190711
  Serious: Yes (Hospitalization, Other)
  Sender: FDA-Public Use
  Company Number: US-PFIZER INC-2019258299

PATIENT
  Sex: Female

DRUGS (2)
  1. LYRICA [Suspect]
     Active Substance: PREGABALIN
     Dosage: UNK
  2. LYRICA [Suspect]
     Active Substance: PREGABALIN
     Dosage: UNK (UPPED DOSE)

REACTIONS (6)
  - Injury [Unknown]
  - Femur fracture [Unknown]
  - Nerve injury [Unknown]
  - Spinal cord injury [Unknown]
  - Haemorrhage [Unknown]
  - Hip fracture [Unknown]
